FAERS Safety Report 5308376-8 (Version None)
Quarter: 2007Q2

REPORT INFORMATION
  Report Type: 
  Country: None (occurrence: None)
  Receive Date: 20070423
  Receipt Date: 20070411
  Transmission Date: 20071010
  Serious: Yes (Death)
  Sender: FDA-Public Use
  Company Number: 2007BI007027

PATIENT
  Age: 72 Year
  Sex: Male

DRUGS (7)
  1. NATALIZUMAB [Suspect]
     Indication: MULTIPLE SCLEROSIS
     Dosage: 300 MG; QW; IV
     Route: 042
     Dates: start: 20061222, end: 20070313
  2. COUMADIN [Concomitant]
  3. LEXAPRO [Concomitant]
  4. DARVOCET [Concomitant]
  5. BACLOFEN [Concomitant]
  6. WELLBUTRIN [Concomitant]
  7. MIRAPEX [Concomitant]

REACTIONS (3)
  - MYOCARDIAL INFARCTION [None]
  - SUDDEN DEATH [None]
  - UPPER RESPIRATORY TRACT INFECTION [None]
